FAERS Safety Report 13244479 (Version 5)
Quarter: 2018Q2

REPORT INFORMATION
  Report Type: Spontaneous
  Country: IT (occurrence: IT)
  Receive Date: 20170217
  Receipt Date: 20180511
  Transmission Date: 20180711
  Serious: Yes (Hospitalization, Other)
  Sender: FDA-Public Use
  Company Number: IT-PFIZER INC-2017067619

PATIENT
  Age: 13 Year
  Sex: Male

DRUGS (5)
  1. VALPROATE SODIUM. [Interacting]
     Active Substance: VALPROATE SODIUM
     Indication: EPILEPSY
     Dosage: UNK
  2. TOPIRAMATE. [Interacting]
     Active Substance: TOPIRAMATE
     Indication: EPILEPSY
     Dosage: UNK
  3. LAMOTRIGINE. [Interacting]
     Active Substance: LAMOTRIGINE
     Indication: EPILEPSY
  4. IBUPROFEN. [Suspect]
     Active Substance: IBUPROFEN
     Dosage: UNK
  5. PARACETAMOL [Interacting]
     Active Substance: ACETAMINOPHEN
     Dosage: 6G/DAY OR 4 G/DAY

REACTIONS (9)
  - Hypertransaminasaemia [Unknown]
  - Acute hepatic failure [Unknown]
  - Rash maculo-papular [Recovered/Resolved]
  - Lip oedema [Unknown]
  - Angular cheilitis [Unknown]
  - Toxicity to various agents [Unknown]
  - Drug interaction [Unknown]
  - Drug-induced liver injury [Unknown]
  - Prothrombin time abnormal [Unknown]
